FAERS Safety Report 8778242 (Version 3)
Quarter: 2012Q4

REPORT INFORMATION
  Report Type: 
  Country: US (occurrence: US)
  Receive Date: 20120912
  Receipt Date: 20121228
  Transmission Date: 20130627
  Serious: Yes (Hospitalization)
  Sender: FDA-Public Use
  Company Number: US-B.I. PHARMACEUTICALS,INC./RIDGEFIELD-2012-BP-22140BP

PATIENT
  Sex: Female

DRUGS (10)
  1. SPIRIVA [Suspect]
     Indication: CHRONIC OBSTRUCTIVE PULMONARY DISEASE
     Dosage: 18 mcg
     Route: 055
  2. CARDIZEM CD [Concomitant]
     Indication: HYPERTENSION
     Dosage: 240 mg
     Route: 048
  3. POTASSIUM [Concomitant]
     Route: 048
  4. VITAMIN B-12 [Concomitant]
     Route: 048
  5. VITAMIN D [Concomitant]
     Route: 048
  6. VITAMIN C [Concomitant]
     Route: 048
  7. MULTIVITAMIN [Concomitant]
     Route: 048
  8. CATAPRES [Concomitant]
     Indication: HYPERTENSION
     Dosage: 0.6 mg
     Route: 048
  9. NEURONTIN [Concomitant]
     Indication: PAIN IN EXTREMITY
     Dosage: 300 mg
     Route: 048
  10. ATIVAN [Concomitant]
     Indication: ANXIETY
     Route: 048

REACTIONS (2)
  - Cataract [Recovered/Resolved]
  - Product quality issue [Recovered/Resolved]
